FAERS Safety Report 9516515 (Version 1)
Quarter: 2013Q3

REPORT INFORMATION
  Report Type: Report from Study
  Country: US (occurrence: US)
  Receive Date: 20130911
  Receipt Date: 20130911
  Transmission Date: 20140515
  Serious: Yes (Other)
  Sender: FDA-Public Use
  Company Number: PHEH2013US017769

PATIENT
  Age: 25 Year
  Sex: Male

DRUGS (1)
  1. TOBI [Suspect]
     Dosage: 300 UKN, BID

REACTIONS (3)
  - Infection [Unknown]
  - Lung disorder [Unknown]
  - Malaise [Unknown]
